FAERS Safety Report 8244565-0 (Version None)
Quarter: 2012Q1

REPORT INFORMATION
  Report Type: 
  Country: None (occurrence: None)
  Receive Date: 20120329
  Receipt Date: 20120322
  Transmission Date: 20120608
  Serious: Yes (Hospitalization)
  Sender: FDA-Public Use
  Company Number: US-BAYER-201036523NA

PATIENT
  Age: 35 Year
  Sex: Female
  Weight: 106.58 kg

DRUGS (12)
  1. VITAMIN B COMPLEX CAP [Concomitant]
     Dosage: DAILY
     Dates: start: 20060101
  2. IBUPROFEN [Concomitant]
     Dosage: 6 A DAY
     Dates: start: 20070101
  3. YAZ [Suspect]
     Indication: PREMENSTRUAL SYNDROME
     Dosage: UNK
     Dates: start: 20080101, end: 20090606
  4. DAILY VITAMINS [Concomitant]
     Dosage: DAILY
     Dates: start: 20060101
  5. CALCIUM VIT D [Concomitant]
     Dosage: UNK UNK, QD
     Route: 048
  6. MIDRIN [Concomitant]
     Indication: MIGRAINE
  7. ALLEGRA-D 12 HOUR [Concomitant]
     Indication: SEASONAL ALLERGY
     Dosage: UNK
     Dates: start: 20080101, end: 20090101
  8. SERTRALINE HYDROCHLORIDE [Concomitant]
     Indication: STRESS
  9. LOVAZA [Concomitant]
     Dosage: DAILY
     Dates: start: 20060101
  10. MULTI-VITAMIN [Concomitant]
     Dosage: UNK UNK, QD
     Route: 048
  11. SERTRALINE HYDROCHLORIDE [Concomitant]
     Indication: DEPRESSION
     Dosage: UNK UNK, PRN
     Dates: start: 20060101
  12. ALLEGRA [Concomitant]
     Indication: SEASONAL ALLERGY
     Dosage: UNK
     Dates: start: 20080101, end: 20090101

REACTIONS (1)
  - INTRACRANIAL VENOUS SINUS THROMBOSIS [None]
